FAERS Safety Report 12393848 (Version 1)
Quarter: 2016Q2

REPORT INFORMATION
  Report Type: Spontaneous
  Country: US (occurrence: US)
  Receive Date: 20160523
  Receipt Date: 20160523
  Transmission Date: 20160815
  Serious: Yes (Other)
  Sender: FDA-Public Use
  Company Number: US-PFIZER INC-2016233126

PATIENT
  Age: 20 Year
  Sex: Male

DRUGS (13)
  1. PREDNISONE. [Suspect]
     Active Substance: PREDNISONE
     Indication: ACUTE LYMPHOCYTIC LEUKAEMIA
     Dosage: UNK
  2. KANAMYCIN SULFATE [Concomitant]
     Active Substance: KANAMYCIN SULFATE
     Indication: PYREXIA
     Dosage: UNK
  3. CYTARABINE. [Suspect]
     Active Substance: CYTARABINE
     Indication: ACUTE LYMPHOCYTIC LEUKAEMIA
     Dosage: 200 MG/M2, CYCLIC (PER DAY BY CONTINUOUS INFUSION FOR 5 DAYS FOLLOWED BY A 9 DAY REST PERIOD)
  4. 6-MERCAPTOPURINE MONOHYDRATE [Suspect]
     Active Substance: MERCAPTOPURINE
     Indication: ACUTE LYMPHOCYTIC LEUKAEMIA
     Dosage: UNK, CYCLIC (THREE COURSES)
  5. COLISTIMETHATE SODIUM. [Concomitant]
     Active Substance: COLISTIMETHATE SODIUM
     Indication: PYREXIA
     Dosage: UNK
  6. METHICILLIN SODIUM [Concomitant]
     Indication: PYREXIA
     Dosage: UNK
  7. CEPHALOTHIN SODIUM [Concomitant]
     Active Substance: CEPHALOTHIN SODIUM
     Indication: BACTERAEMIA
  8. KANAMYCIN SULFATE [Concomitant]
     Active Substance: KANAMYCIN SULFATE
     Indication: BACTERAEMIA
  9. COLISTIMETHATE SODIUM. [Concomitant]
     Active Substance: COLISTIMETHATE SODIUM
     Indication: BACTERAEMIA
  10. 6-METHYL MERAPTOPURINE RIBOSIDE [Suspect]
     Active Substance: METHYLTHIOINOSINE
     Indication: ACUTE LYMPHOCYTIC LEUKAEMIA
     Dosage: UNK, CYCLIC (THREE COURSES)
  11. VINCRISTINE SULFATE. [Suspect]
     Active Substance: VINCRISTINE SULFATE
     Indication: ACUTE LYMPHOCYTIC LEUKAEMIA
     Dosage: UNK
  12. METHICILLIN SODIUM [Concomitant]
     Indication: BACTERAEMIA
  13. CEPHALOTHIN SODIUM [Concomitant]
     Active Substance: CEPHALOTHIN SODIUM
     Indication: PYREXIA
     Dosage: UNK

REACTIONS (2)
  - Second primary malignancy [Unknown]
  - Chronic myeloid leukaemia [Unknown]
